FAERS Safety Report 6115431-1 (Version None)
Quarter: 2009Q1

REPORT INFORMATION
  Report Type: 
  Country: None (occurrence: None)
  Receive Date: 20090313
  Receipt Date: 20090309
  Transmission Date: 20090719
  Serious: Yes (Other)
  Sender: FDA-Public Use
  Company Number: IE-AVENTIS-200911166EU

PATIENT
  Sex: Female

DRUGS (2)
  1. CLEXANE [Suspect]
     Indication: PROPHYLAXIS
  2. INNOHEP                            /01707902/ [Suspect]
     Indication: PROPHYLAXIS

REACTIONS (2)
  - HIP FRACTURE [None]
  - OSTEOPENIA [None]
